FAERS Safety Report 14084141 (Version 1)
Quarter: 2017Q4

REPORT INFORMATION
  Report Type: Other
  Country: US (occurrence: US)
  Receive Date: 20171013
  Receipt Date: 20171013
  Transmission Date: 20180321
  Serious: No
  Sender: FDA-Public Use
  Company Number: US-EPIC PHARMA LLC-2017EPC00158

PATIENT
  Sex: Female
  Weight: 92.97 kg

DRUGS (10)
  1. NEXIUM [Concomitant]
     Active Substance: ESOMEPRAZOLE MAGNESIUM
  2. CETIRIZINE [Concomitant]
     Active Substance: CETIRIZINE HYDROCHLORIDE
  3. OXYCODONE HYDROCHLORIDE. [Suspect]
     Active Substance: OXYCODONE HYDROCHLORIDE
     Indication: SYSTEMIC LUPUS ERYTHEMATOSUS
     Dosage: 30 MG, AS DIRECTED
     Route: 048
     Dates: start: 201705, end: 201705
  4. OXYCODONE HYDROCHLORIDE. [Suspect]
     Active Substance: OXYCODONE HYDROCHLORIDE
     Dosage: ^LOWER DOSE^
     Route: 048
     Dates: start: 2003
  5. OXYCONTIN [Concomitant]
     Active Substance: OXYCODONE HYDROCHLORIDE
     Dosage: UNK, 2X/DAY
     Dates: end: 201707
  6. OXYCODONE HYDROCHLORIDE. [Suspect]
     Active Substance: OXYCODONE HYDROCHLORIDE
     Indication: BACK PAIN
     Dosage: 30 MG, UP TO 4X/DAY
     Route: 048
     Dates: start: 2009, end: 2013
  7. OXYCODONE HYDROCHLORIDE. [Suspect]
     Active Substance: OXYCODONE HYDROCHLORIDE
     Indication: PAIN
     Dosage: 30 MG, UP TO 4X/DAY
     Route: 048
     Dates: start: 2015, end: 2017
  8. OXYCODONE HYDROCHLORIDE. [Suspect]
     Active Substance: OXYCODONE HYDROCHLORIDE
     Indication: ARTHRALGIA
     Dosage: UNK
     Route: 048
     Dates: start: 2002, end: 2008
  9. RANITIDINE. [Concomitant]
     Active Substance: RANITIDINE
  10. OXYCONTIN [Concomitant]
     Active Substance: OXYCODONE HYDROCHLORIDE
     Dosage: UNK, 3X/DAY
     Dates: start: 201707

REACTIONS (13)
  - Thyroid function test abnormal [Recovering/Resolving]
  - Weight increased [Not Recovered/Not Resolved]
  - Hepatic pain [Not Recovered/Not Resolved]
  - Hepatic enzyme increased [Unknown]
  - Faeces pale [Recovered/Resolved]
  - Abdominal pain [Not Recovered/Not Resolved]
  - Thyroid disorder [Recovering/Resolving]
  - Muscle spasms [Recovered/Resolved]
  - Extremity contracture [Unknown]
  - Unevaluable event [Unknown]
  - Vitamin D decreased [Unknown]
  - Rash vesicular [Recovered/Resolved]
  - Pruritus [Recovered/Resolved]

NARRATIVE: CASE EVENT DATE: 2017
